FAERS Safety Report 12083022 (Version 1)
Quarter: 2016Q1

REPORT INFORMATION
  Report Type: Spontaneous
  Country: None (occurrence: None)
  Receive Date: 20160216
  Receipt Date: 20160216
  Transmission Date: 20160526
  Serious: No
  Sender: FDA-Public Use
  Company Number: None

PATIENT
  Age: 24 Year
  Sex: Female
  Weight: 59.88 kg

DRUGS (7)
  1. LO LOESTRIN FE [Concomitant]
     Active Substance: ETHINYL ESTRADIOL\NORETHINDRONE ACETATE
  2. MYRBETRIQ [Suspect]
     Active Substance: MIRABEGRON
     Indication: HYPERTONIC BLADDER
     Dosage: 1 PILL ONCE DAILY TAKEN BY MOUTH
     Route: 048
     Dates: start: 20160129, end: 20160212
  3. IBUPROFEN. [Concomitant]
     Active Substance: IBUPROFEN
  4. TYLENOL [Concomitant]
     Active Substance: ACETAMINOPHEN
  5. NAPROXEN. [Concomitant]
     Active Substance: NAPROXEN
  6. EPIPEN [Concomitant]
     Active Substance: EPINEPHRINE
  7. TOPAMAX [Concomitant]
     Active Substance: TOPIRAMATE

REACTIONS (9)
  - Nausea [None]
  - Dizziness [None]
  - Dry mouth [None]
  - Constipation [None]
  - Headache [None]
  - Urine abnormality [None]
  - Abdominal pain upper [None]
  - Vertigo [None]
  - Memory impairment [None]

NARRATIVE: CASE EVENT DATE: 20160212
